FAERS Safety Report 5282905-5 (Version None)
Quarter: 2007Q1

REPORT INFORMATION
  Report Type: 
  Country: None (occurrence: None)
  Receive Date: 20070328
  Receipt Date: 20070328
  Transmission Date: 20070707
  Serious: No
  Sender: FDA-Public Use
  Company Number: None

PATIENT
  Age: 60 Year
  Sex: Male
  Weight: 104.7809 kg

DRUGS (12)
  1. AMIODARONE HCL [Suspect]
     Indication: ATRIAL FIBRILLATION
     Dosage: 150 MG X 1 IV
     Route: 042
     Dates: start: 20070309, end: 20070309
  2. AMIODARONE HCL [Suspect]
     Indication: CARDIOVERSION
     Dosage: 150 MG X 1 IV
     Route: 042
     Dates: start: 20070309, end: 20070309
  3. NIASPAN [Concomitant]
  4. OMEPRAZOLE [Concomitant]
  5. ATENOLOL [Concomitant]
  6. BACLOFEN [Concomitant]
  7. NAPROXEN [Concomitant]
  8. TERAZOSIN HCL [Concomitant]
  9. COMBIVENT [Concomitant]
  10. TRAMADOL HCL [Concomitant]
  11. FELODIPINE [Concomitant]
  12. LISINOPRIL [Concomitant]

REACTIONS (6)
  - APHASIA [None]
  - DYSPNOEA [None]
  - ERYTHEMA [None]
  - FLUSHING [None]
  - INFUSION RELATED REACTION [None]
  - WHEEZING [None]
